FAERS Safety Report 9083986 (Version 1)
Quarter: 2013Q1

REPORT INFORMATION
  Report Type: Spontaneous
  Country: RU (occurrence: RU)
  Receive Date: 20130131
  Receipt Date: 20130131
  Transmission Date: 20140127
  Serious: Yes (Life-Threatening, Hospitalization)
  Sender: FDA-Public Use
  Company Number: RU-BAYER-2013-007763

PATIENT
  Age: 27 Year
  Sex: Female

DRUGS (2)
  1. YARINA [Suspect]
     Indication: CONTRACEPTION
     Dosage: UNK
     Dates: start: 201201, end: 2012
  2. YAZ [Suspect]
     Indication: CONTRACEPTION
     Dosage: UNK
     Route: 048

REACTIONS (11)
  - Deep vein thrombosis [None]
  - Embolism [None]
  - Pulmonary hypertension [None]
  - Amenorrhoea [None]
  - Bronchitis [None]
  - Cough [None]
  - Dyspnoea [None]
  - Tachycardia [None]
  - Pyrexia [None]
  - Pain in extremity [None]
  - Oedema [None]
